FAERS Safety Report 8845871 (Version 1)
Quarter: 2012Q4

REPORT INFORMATION
  Report Type: 
  Country: US (occurrence: US)
  Receive Date: 20121017
  Receipt Date: 20121017
  Transmission Date: 20130627
  Serious: Yes (Other)
  Sender: FDA-Public Use
  Company Number: US-BAYER-2012-106865

PATIENT
  Age: 52 Year
  Sex: Female

DRUGS (1)
  1. MIRENA [Suspect]
     Indication: MENORRHAGIA
     Dosage: Daily dose 20 mcg/24hr
     Route: 015
     Dates: start: 20120806, end: 20120829

REACTIONS (3)
  - Vaginal haemorrhage [None]
  - Pain [None]
  - Device expulsion [None]
